FAERS Safety Report 8993612 (Version 1)
Quarter: 2013Q1

REPORT INFORMATION
  Report Type: Report from Study
  Country: US (occurrence: US)
  Receive Date: 20130102
  Receipt Date: 20130102
  Transmission Date: 20140127
  Serious: Yes (Hospitalization, Other)
  Sender: FDA-Public Use
  Company Number: US-BRISTOL-MYERS SQUIBB COMPANY-15218837

PATIENT
  Age: 63 Year
  Sex: Male

DRUGS (11)
  1. DASATINIB [Suspect]
     Indication: PROSTATE CANCER
     Route: 048
     Dates: start: 20100505, end: 20100723
  2. TAXOTERE [Suspect]
     Indication: PROSTATE CANCER
     Route: 042
     Dates: start: 20100505
  3. PREDNISONE [Suspect]
     Route: 048
     Dates: start: 20100505, end: 20100723
  4. DECADRON [Suspect]
     Dates: start: 20100505, end: 20100507
  5. VICODIN [Concomitant]
     Indication: PAIN
     Dosage: 1DF:1 TO 2 TABS?Q4:6HRS
     Route: 048
  6. ASPIRIN [Concomitant]
     Route: 048
  7. LIPITOR [Concomitant]
     Dosage: AT NIGHT
     Route: 048
  8. ATENOLOL [Concomitant]
     Route: 048
  9. TUMS [Concomitant]
  10. VITAMIN D [Concomitant]
  11. SIMVASTATIN [Concomitant]

REACTIONS (4)
  - Gastric ulcer perforation [Recovered/Resolved]
  - Peritonitis [Recovered/Resolved]
  - Urinary tract infection [Recovered/Resolved]
  - Staphylococcal sepsis [Recovered/Resolved]
